FAERS Safety Report 8274161-0 (Version None)
Quarter: 2012Q2

REPORT INFORMATION
  Report Type: 
  Country: None (occurrence: None)
  Receive Date: 20120411
  Receipt Date: 20120403
  Transmission Date: 20120825
  Serious: Yes (Hospitalization)
  Sender: FDA-Public Use
  Company Number: US-ASTRAZENECA-2011SE57677

PATIENT
  Age: 75 Year
  Sex: Female

DRUGS (3)
  1. NEXIUM [Suspect]
     Route: 048
     Dates: start: 20090101
  2. POTASSIUM [Concomitant]
  3. PROBIOTICS [Concomitant]

REACTIONS (2)
  - CLOSTRIDIAL INFECTION [None]
  - MALAISE [None]
